FAERS Safety Report 8966609 (Version 1)
Quarter: 2012Q4

REPORT INFORMATION
  Report Type: 
  Country: US (occurrence: US)
  Receive Date: 20121217
  Receipt Date: 20121217
  Transmission Date: 20130627
  Serious: No
  Sender: FDA-Public Use
  Company Number: US-PFIZER INC-2012318383

PATIENT
  Age: 36 Year
  Sex: Female
  Weight: 51.25 kg

DRUGS (2)
  1. ZOLOFT [Suspect]
     Indication: DEPRESSION
     Dosage: one and half tablet by splitting 100 mg tablet daily
     Route: 048
     Dates: start: 20110617
  2. ZOLOFT [Suspect]
     Indication: ANXIETY

REACTIONS (1)
  - Foreign body [Unknown]
